FAERS Safety Report 5071402-8 (Version None)
Quarter: 2006Q3

REPORT INFORMATION
  Report Type: 
  Country: None (occurrence: None)
  Receive Date: 20060804
  Receipt Date: 20060428
  Transmission Date: 20061208
  Serious: No
  Sender: FDA-Public Use
  Company Number: US-AMGEN-US177977

PATIENT
  Sex: Female

DRUGS (9)
  1. ARANESP [Suspect]
     Indication: ANAEMIA
     Route: 058
     Dates: start: 20051206
  2. POLYSARRARIDE IRON [Concomitant]
  3. BENICAR [Concomitant]
  4. CALTRATE [Concomitant]
  5. LASIX [Concomitant]
  6. METHOCARBAMOL [Concomitant]
  7. OMEPRAZOLE [Concomitant]
  8. SENOKOT [Concomitant]
  9. VITAMIN D [Concomitant]

REACTIONS (1)
  - THERAPEUTIC RESPONSE DECREASED [None]
